FAERS Safety Report 13299857 (Version 1)
Quarter: 2017Q1

REPORT INFORMATION
  Report Type: Spontaneous
  Country: US (occurrence: US)
  Receive Date: 20170306
  Receipt Date: 20170306
  Transmission Date: 20170428
  Serious: Yes (Hospitalization)
  Sender: FDA-Public Use
  Company Number: US-TEVA-745464USA

PATIENT
  Age: 61 Year
  Sex: Male
  Weight: 73.09 kg

DRUGS (24)
  1. CALCIUM CARBONATE. [Concomitant]
     Active Substance: CALCIUM CARBONATE
     Indication: SUPPLEMENTATION THERAPY
  2. HYDRALAZINE [Concomitant]
     Active Substance: HYDRALAZINE HYDROCHLORIDE
  3. OXYCODONE [Concomitant]
     Active Substance: OXYCODONE
  4. DOCUSATE [Concomitant]
     Active Substance: DOCUSATE
  5. DIAZEPAM. [Concomitant]
     Active Substance: DIAZEPAM
  6. FLUTICASONE. [Concomitant]
     Active Substance: FLUTICASONE
  7. BACLOFEN. [Suspect]
     Active Substance: BACLOFEN
     Dosage: 3.1 UG PER DAY  REGIMEN3
     Route: 037
     Dates: start: 20161127
  8. BACLOFEN. [Suspect]
     Active Substance: BACLOFEN
     Route: 048
  9. AMITRIPTYLINE [Concomitant]
     Active Substance: AMITRIPTYLINE
  10. BISACODYL. [Concomitant]
     Active Substance: BISACODYL
     Route: 065
  11. TAMSULOSIN [Concomitant]
     Active Substance: TAMSULOSIN
  12. BACLOFEN. [Suspect]
     Active Substance: BACLOFEN
     Indication: MUSCLE SPASTICITY
     Dosage: 50UG PER DAY  REGIMEN 1
     Route: 037
  13. ACETAMINOPHEN. [Concomitant]
     Active Substance: ACETAMINOPHEN
  14. LORAZEPAM. [Concomitant]
     Active Substance: LORAZEPAM
  15. MIRALAX [Concomitant]
     Active Substance: POLYETHYLENE GLYCOL 3350
  16. CITALOPRAM [Concomitant]
     Active Substance: CITALOPRAM HYDROBROMIDE
  17. GABAPENTIN. [Concomitant]
     Active Substance: GABAPENTIN
  18. LABETALOL [Concomitant]
     Active Substance: LABETALOL\LABETALOL HYDROCHLORIDE
  19. BACLOFEN. [Suspect]
     Active Substance: BACLOFEN
     Dosage: 3UG PER DAY  REGIMEN 2
     Route: 037
     Dates: end: 20161126
  20. HEPARIN [Concomitant]
     Active Substance: HEPARIN SODIUM
  21. ONDANSETRON [Concomitant]
     Active Substance: ONDANSETRON
  22. ZOLPIDEM [Concomitant]
     Active Substance: ZOLPIDEM\ZOLPIDEM TARTRATE
  23. BACLOFEN. [Suspect]
     Active Substance: BACLOFEN
     Dosage: 5000 UG PER DAY  REGIMEN3
     Route: 037
     Dates: start: 20161126, end: 20161127
  24. SENNA [Concomitant]
     Active Substance: SENNA LEAF\SENNOSIDES\SENNOSIDES A AND B

REACTIONS (4)
  - Overdose [Recovered/Resolved]
  - Incorrect dose administered [Recovered/Resolved]
  - Unresponsive to stimuli [Recovered/Resolved]
  - Somnolence [Recovered/Resolved]

NARRATIVE: CASE EVENT DATE: 20161126
